FAERS Safety Report 21597142 (Version 3)
Quarter: 2024Q4

REPORT INFORMATION
  Report Type: Report from Study
  Country: US (occurrence: US)
  Receive Date: 20221115
  Receipt Date: 20241217
  Transmission Date: 20250115
  Serious: Yes (Other)
  Sender: ABBVIE
  Company Number: US-ABBVIE-4155444

PATIENT
  Age: 68 Year
  Sex: Male
  Weight: 83.914 kg

DRUGS (21)
  1. HUMIRA [Suspect]
     Active Substance: ADALIMUMAB
     Indication: Psoriasis
     Route: 058
     Dates: start: 20160111, end: 20170828
  2. HUMIRA [Suspect]
     Active Substance: ADALIMUMAB
     Indication: Psoriatic arthropathy
  3. MODERNA COVID-19 VACCINE [Concomitant]
     Active Substance: ELASOMERAN
     Indication: COVID-19 immunisation
     Dosage: 3RD BOOSTER DOSE
     Route: 030
     Dates: start: 20220412, end: 20220412
  4. MODERNA COVID-19 VACCINE [Concomitant]
     Active Substance: ELASOMERAN
     Indication: COVID-19 immunisation
     Dosage: 1ST DOSE/1 IN ONCE
     Route: 030
     Dates: start: 20210212, end: 20210212
  5. MODERNA COVID-19 VACCINE [Concomitant]
     Active Substance: ELASOMERAN
     Indication: COVID-19 immunisation
     Dosage: 4TH BOOSTER DOSE
     Route: 030
     Dates: start: 20220929, end: 20220929
  6. MODERNA COVID-19 VACCINE [Concomitant]
     Active Substance: ELASOMERAN
     Indication: COVID-19 immunisation
     Dosage: 3RD DOSE/1 IN ONCE
     Route: 030
     Dates: start: 20211025, end: 20211025
  7. MODERNA COVID-19 VACCINE [Concomitant]
     Active Substance: ELASOMERAN
     Indication: COVID-19 immunisation
     Dosage: 3RD BOOSTER DOSE
     Route: 030
     Dates: start: 20220412, end: 20220412
  8. MODERNA COVID-19 VACCINE [Concomitant]
     Active Substance: ELASOMERAN
     Indication: COVID-19 immunisation
     Dosage: BOOSTER DOSE/1 IN ONCE
     Route: 030
     Dates: start: 20220412, end: 20220412
  9. MODERNA COVID-19 VACCINE [Concomitant]
     Active Substance: ELASOMERAN
     Indication: COVID-19 immunisation
     Dosage: 4TH BOOSTER DOSE
     Route: 030
     Dates: start: 20220929, end: 20220929
  10. MODERNA COVID-19 VACCINE [Concomitant]
     Active Substance: ELASOMERAN
     Indication: COVID-19 immunisation
     Dosage: SECOND BOOSTER DOSE/1 IN ONCE
     Route: 030
     Dates: start: 20220929, end: 20220929
  11. MODERNA COVID-19 VACCINE [Concomitant]
     Active Substance: ELASOMERAN
     Indication: COVID-19 immunisation
     Dosage: 2ND DOSE/ 1 IN ONCE
     Route: 030
     Dates: start: 20210312, end: 20210312
  12. MODERNA COVID-19 VACCINE [Concomitant]
     Active Substance: ELASOMERAN
     Indication: COVID-19 immunisation
     Dosage: 4TH BOOSTER DOSE
     Route: 030
     Dates: start: 20220929, end: 20220929
  13. ELIQUIS [Concomitant]
     Active Substance: APIXABAN
     Indication: Anticoagulant therapy
     Dosage: 1 TABLET EVERY 12 HOURS
  14. DILTIAZEM [Concomitant]
     Active Substance: DILTIAZEM
     Indication: Heart rate increased
  15. IC Clobetasol Liquid [Concomitant]
     Indication: Psoriasis
     Dosage: 0.05% MIXED WITH MOISTURIZING CREAM
     Route: 061
  16. VIAGRA [Concomitant]
     Active Substance: SILDENAFIL CITRATE
     Indication: Product used for unknown indication
     Dosage: WHEN NEEDED
  17. IC Ketoconazole 2% Shampoo [Concomitant]
     Indication: Psoriasis
     Dosage: 3 TIMES WEEKLY
  18. Rabeprazole ( Aciphex ) Sod Dr [Concomitant]
     Indication: Hiatus hernia
     Route: 048
  19. ALEVE [Concomitant]
     Active Substance: NAPROXEN SODIUM
     Indication: Arthralgia
  20. IC Atorvastatin [Concomitant]
     Indication: Blood cholesterol
  21. CLOBETASOL PROPIONATE [Concomitant]
     Active Substance: CLOBETASOL PROPIONATE
     Indication: Psoriasis
     Dosage: 0.05% TWICE DAILY

REACTIONS (8)
  - Atrial fibrillation [Recovering/Resolving]
  - Groin pain [Recovered/Resolved]
  - Inguinal hernia [Unknown]
  - Therapeutic product effect decreased [Not Recovered/Not Resolved]
  - Psoriasis [Recovered/Resolved]
  - Atrial fibrillation [Recovering/Resolving]
  - Cardiac ablation [Unknown]
  - Cardiac ablation [Unknown]

NARRATIVE: CASE EVENT DATE: 20170601
